FAERS Safety Report 25149211 (Version 1)
Quarter: 2025Q2

REPORT INFORMATION
  Report Type: Spontaneous
  Country: US (occurrence: US)
  Receive Date: 20250402
  Receipt Date: 20250402
  Transmission Date: 20250717
  Serious: Yes (Death, Hospitalization, Other)
  Sender: ACCORD
  Company Number: US-Accord-475159

PATIENT
  Age: 85 Year
  Sex: Female

DRUGS (19)
  1. LISINOPRIL [Suspect]
     Active Substance: LISINOPRIL
     Indication: Product used for unknown indication
  2. SPIRONOLACTONE [Suspect]
     Active Substance: SPIRONOLACTONE
     Indication: Product used for unknown indication
  3. MIFEPRISTONE [Suspect]
     Active Substance: MIFEPRISTONE
     Indication: Cushing^s syndrome
     Route: 048
     Dates: start: 202410, end: 202501
  4. VALIUM [Suspect]
     Active Substance: DIAZEPAM
     Indication: Product used for unknown indication
     Dates: start: 20250108
  5. CARVEDILOL [Suspect]
     Active Substance: CARVEDILOL
     Indication: Product used for unknown indication
  6. HYDROCODONE [Suspect]
     Active Substance: HYDROCODONE
     Indication: Product used for unknown indication
     Dates: start: 20250108
  7. ALLOPURINOL [Concomitant]
     Active Substance: ALLOPURINOL
  8. ANASTROZOLE [Concomitant]
     Active Substance: ANASTROZOLE
  9. ASPIRIN [Concomitant]
     Active Substance: ASPIRIN
  10. AZELASTINE, FLUTICASONE [Concomitant]
  11. DOCUSATE [Concomitant]
     Active Substance: DOCUSATE
  12. FISH OIL [Concomitant]
     Active Substance: FISH OIL
  13. GABAPENTIN [Concomitant]
     Active Substance: GABAPENTIN
  14. LANTUS [Concomitant]
     Active Substance: INSULIN GLARGINE
  15. INSULIN LISPRO [Concomitant]
     Active Substance: INSULIN LISPRO
  16. VITAMINS [Concomitant]
     Active Substance: VITAMINS
  17. ROSUVASTATIN [Concomitant]
     Active Substance: ROSUVASTATIN
  18. TYLENOL [Concomitant]
     Active Substance: ACETAMINOPHEN
  19. VOLTAREN [Concomitant]
     Active Substance: DICLOFENAC SODIUM

REACTIONS (14)
  - Death [Fatal]
  - Unresponsive to stimuli [Recovering/Resolving]
  - Renal impairment [Not Recovered/Not Resolved]
  - Neuroprosthesis implantation [Recovered/Resolved]
  - Hypercapnia [Unknown]
  - Cystitis [Not Recovered/Not Resolved]
  - Decubitus ulcer [Unknown]
  - Procedural nausea [Unknown]
  - Hypervolaemia [Not Recovered/Not Resolved]
  - Aphasia [Not Recovered/Not Resolved]
  - Blood pressure decreased [Recovering/Resolving]
  - Fatigue [Not Recovered/Not Resolved]
  - Pain [Not Recovered/Not Resolved]
  - Vomiting [Unknown]

NARRATIVE: CASE EVENT DATE: 20250101
